FAERS Safety Report 7556890 (Version 2)
Quarter: 2013Q4

REPORT INFORMATION
  Report Type: Report from Study
  Country: DE (occurrence: DE)
  Receive Date: 20100827
  Receipt Date: 20131206
  Transmission Date: 20140711
  Serious: Yes (Hospitalization)
  Sender: FDA-Public Use
  Company Number: DE-ROCHE-722674

PATIENT
  Age: 82 Year
  Sex: Female
  Weight: 68 kg

DRUGS (7)
  1. BEVACIZUMAB [Suspect]
     Indication: BREAST CANCER
     Dosage: DOSE AS PER PROTOCOL, DAY 1
     Route: 042
     Dates: start: 20100722
  2. CAPECITABINE [Suspect]
     Indication: BREAST CANCER
     Dosage: DOSE AS PER PROTOCOL. DAYS 1 - 14
     Route: 048
     Dates: start: 20100722
  3. LEVOFLOXACIN [Concomitant]
     Route: 065
     Dates: start: 20100806, end: 20100811
  4. BETA-ACETYLDIGOXIN [Concomitant]
     Route: 065
     Dates: start: 2008
  5. ZOPICON [Concomitant]
     Route: 065
     Dates: start: 2008
  6. AMITRIPTYLINE HCL [Concomitant]
     Route: 065
     Dates: start: 2008
  7. EUTHYROX [Concomitant]
     Route: 065
     Dates: start: 2008

REACTIONS (1)
  - Palmar-plantar erythrodysaesthesia syndrome [Recovered/Resolved]
